FAERS Safety Report 7837154-0 (Version None)
Quarter: 2011Q4

REPORT INFORMATION
  Report Type: 
  Country: None (occurrence: None)
  Receive Date: 20111024
  Receipt Date: 20110315
  Transmission Date: 20120403
  Serious: No
  Sender: FDA-Public Use
  Company Number: US-ABBOTT-11P-163-0712137-00

PATIENT
  Sex: Female
  Weight: 59.02 kg

DRUGS (1)
  1. LUPRON DEPOT [Suspect]
     Indication: ENDOMETRIOSIS
     Route: 050
     Dates: start: 20101201

REACTIONS (4)
  - MUSCLE SPASMS [None]
  - CHEST PAIN [None]
  - MENSTRUAL DISORDER [None]
  - ANXIETY [None]
